FAERS Safety Report 11806322 (Version 4)
Quarter: 2016Q1

REPORT INFORMATION
  Report Type: Spontaneous
  Country: US (occurrence: US)
  Receive Date: 20151207
  Receipt Date: 20160119
  Transmission Date: 20160525
  Serious: Yes (Hospitalization)
  Sender: FDA-Public Use
  Company Number: US-HORIZON-RAV-0107-2015

PATIENT
  Age: 59 Year
  Sex: Female

DRUGS (3)
  1. L-CARNITINE [Concomitant]
     Active Substance: LEVOCARNITINE
  2. RAVICTI [Suspect]
     Active Substance: GLYCEROL PHENYLBUTYRATE
     Indication: UREA CYCLE ENZYME DEFICIENCY
     Dosage: 5 ML TID
     Dates: start: 201309
  3. CITRULLINE [Concomitant]
     Active Substance: CITRULLINE

REACTIONS (2)
  - Chronic gastritis [Unknown]
  - Barrett^s oesophagus [Unknown]

NARRATIVE: CASE EVENT DATE: 201511
